FAERS Safety Report 20658278 (Version 1)
Quarter: 2022Q1

REPORT INFORMATION
  Report Type: Spontaneous
  Country: CA (occurrence: CA)
  Receive Date: 20220331
  Receipt Date: 20220331
  Transmission Date: 20220423
  Serious: Yes (Other)
  Sender: FDA-Public Use
  Company Number: CA-CELLTRION INC.-2022CA003823

PATIENT

DRUGS (1)
  1. TRUXIMA [Suspect]
     Active Substance: RITUXIMAB-ABBS
     Indication: Nephrotic syndrome
     Dosage: 375 MG/M2, TRUXIMA DOSE = 400 MG (WE WILLS START WITH 2 DOSES ONE WEEK APART AND FOLLOW C19 COUNT; T

REACTIONS (2)
  - Nephrotic syndrome [Unknown]
  - Off label use [Unknown]
